FAERS Safety Report 7382232-6 (Version None)
Quarter: 2011Q1

REPORT INFORMATION
  Report Type: 
  Country: None (occurrence: None)
  Receive Date: 20110329
  Receipt Date: 20110325
  Transmission Date: 20110831
  Serious: Yes (Hospitalization, Other)
  Sender: FDA-Public Use
  Company Number: DE-AMGEN-QUU423264

PATIENT
  Sex: Male
  Weight: 78 kg

DRUGS (4)
  1. NPLATE [Suspect]
     Indication: IDIOPATHIC THROMBOCYTOPENIC PURPURA
     Dosage: UNK UNK, Q2WK
     Route: 058
     Dates: start: 20090714, end: 20100810
  2. IMMUNOGLOBULINS [Concomitant]
     Dosage: UNK UNK, UNK
     Route: 042
  3. BISOPROLOL [Concomitant]
  4. RAMIPRIL [Concomitant]

REACTIONS (7)
  - ATRIOVENTRICULAR BLOCK [None]
  - PULMONARY EMBOLISM [None]
  - THERAPEUTIC RESPONSE DECREASED [None]
  - PLATELET COUNT ABNORMAL [None]
  - ARTHRALGIA [None]
  - DRUG INEFFECTIVE [None]
  - DEEP VEIN THROMBOSIS [None]
